FAERS Safety Report 7132980-8 (Version None)
Quarter: 2010Q4

REPORT INFORMATION
  Report Type: 
  Country: None (occurrence: None)
  Receive Date: 20101202
  Receipt Date: 20101124
  Transmission Date: 20110411
  Serious: Yes (Hospitalization, Disabling, Other)
  Sender: FDA-Public Use
  Company Number: US-MERCK-0902USA00147

PATIENT
  Age: 63 Year
  Sex: Female

DRUGS (4)
  1. FOSAMAX [Suspect]
     Indication: OSTEOPOROSIS
     Route: 048
     Dates: start: 19990501, end: 20020101
  2. FOSAMAX [Suspect]
     Route: 048
     Dates: start: 20021201, end: 20031218
  3. FOSAMAX [Suspect]
     Indication: OSTEOPENIA
     Route: 048
     Dates: start: 19990501, end: 20020101
  4. FOSAMAX [Suspect]
     Route: 048
     Dates: start: 20021201, end: 20031218

REACTIONS (46)
  - AORTIC ANEURYSM [None]
  - AORTIC STENOSIS [None]
  - ASTHMA [None]
  - BACK PAIN [None]
  - BASAL CELL CARCINOMA [None]
  - BENIGN BREAST NEOPLASM [None]
  - CARDIAC MURMUR [None]
  - CHEST WALL MASS [None]
  - COLITIS [None]
  - COUGH [None]
  - DYSPNOEA [None]
  - DYSPNOEA EXERTIONAL [None]
  - DYSURIA [None]
  - ESSENTIAL HYPERTENSION [None]
  - EXOSTOSIS [None]
  - FATIGUE [None]
  - FIBROCYSTIC BREAST DISEASE [None]
  - FOOT FRACTURE [None]
  - HEADACHE [None]
  - HEPATIC CYST [None]
  - HIATUS HERNIA [None]
  - HYPERLIPIDAEMIA [None]
  - INSOMNIA [None]
  - LOWER LIMB FRACTURE [None]
  - MUCOSAL ULCERATION [None]
  - MUSCULAR WEAKNESS [None]
  - MUSCULOSKELETAL PAIN [None]
  - NEOPLASM MALIGNANT [None]
  - OEDEMA [None]
  - OSTEOARTHRITIS [None]
  - OSTEONECROSIS OF JAW [None]
  - OSTEOPENIA [None]
  - PAIN [None]
  - RHEUMATIC HEART DISEASE [None]
  - RHINITIS ALLERGIC [None]
  - SINUS DISORDER [None]
  - SPINAL CORD COMPRESSION [None]
  - SPINAL OSTEOARTHRITIS [None]
  - TEMPOROMANDIBULAR JOINT SYNDROME [None]
  - THIRST [None]
  - TINNITUS [None]
  - TREATMENT NONCOMPLIANCE [None]
  - URINARY TRACT INFECTION [None]
  - VARICOSE VEIN [None]
  - VERTIGO [None]
  - WRIST FRACTURE [None]
